FAERS Safety Report 6035033-5 (Version None)
Quarter: 2009Q1

REPORT INFORMATION
  Report Type: 
  Country: None (occurrence: None)
  Receive Date: 20090112
  Receipt Date: 20061122
  Transmission Date: 20090719
  Serious: No
  Sender: FDA-Public Use
  Company Number: US-ABBOTT-06P-163-0351593-00

PATIENT
  Sex: Female

DRUGS (1)
  1. NIMBEX [Suspect]
     Indication: SURGERY
     Dates: start: 20061122, end: 20061122

REACTIONS (2)
  - AGITATION [None]
  - HYPOTONIA [None]
